FAERS Safety Report 14449957 (Version 1)
Quarter: 2018Q1

REPORT INFORMATION
  Report Type: Spontaneous
  Country: DE (occurrence: DE)
  Receive Date: 20180128
  Receipt Date: 20180128
  Transmission Date: 20180509
  Serious: Yes (Hospitalization, Other)
  Sender: FDA-Public Use
  Company Number: DE-ROCHE-1971103

PATIENT
  Age: 74 Year
  Sex: Male
  Weight: 70 kg

DRUGS (10)
  1. ASPIRIN. [Concomitant]
     Active Substance: ASPIRIN
     Indication: CORONARY ARTERY DISEASE
     Route: 048
     Dates: start: 2002
  2. IMUREK [Concomitant]
     Active Substance: AZATHIOPRINE
     Indication: HEART TRANSPLANT
     Route: 048
     Dates: start: 2002
  3. ATACAND [Concomitant]
     Active Substance: CANDESARTAN CILEXETIL
     Indication: HEART TRANSPLANT
     Route: 048
     Dates: start: 2002
  4. OMEPRAZOL [Concomitant]
     Active Substance: OMEPRAZOLE
     Route: 048
     Dates: start: 2002
  5. CICLOSPORIN [Concomitant]
     Active Substance: CYCLOSPORINE
     Indication: HEART TRANSPLANT
  6. PROCORALAN [Concomitant]
     Active Substance: IVABRADINE
     Indication: HEART TRANSPLANT
     Route: 048
     Dates: start: 2002
  7. CORTISONE [Concomitant]
     Active Substance: CORTISONE\HYDROCORTISONE
     Indication: ARTHRALGIA
  8. URBASON [Concomitant]
     Active Substance: METHYLPREDNISOLONE
     Indication: HEART TRANSPLANT
     Route: 048
     Dates: start: 2002
  9. ACICLOVIR [Concomitant]
     Active Substance: ACYCLOVIR
     Route: 048
     Dates: start: 2002, end: 2012
  10. CELLCEPT [Suspect]
     Active Substance: MYCOPHENOLATE MOFETIL\MYCOPHENOLATE MOFETIL HYDROCHLORIDE
     Indication: HEART TRANSPLANT
     Dosage: 1-0-1
     Route: 048
     Dates: start: 2002, end: 20170725

REACTIONS (19)
  - Diarrhoea [Recovered/Resolved]
  - Transient ischaemic attack [Unknown]
  - Abdominal pain upper [Unknown]
  - Hiccups [Unknown]
  - Weight decreased [Recovering/Resolving]
  - Goitre [Unknown]
  - Blood creatinine increased [Unknown]
  - Coronary artery disease [Not Recovered/Not Resolved]
  - Transplant rejection [Unknown]
  - Aortic valve incompetence [Unknown]
  - Pyrexia [Unknown]
  - Glucose tolerance impaired [Unknown]
  - Oral herpes [Unknown]
  - Acute myocardial infarction [Unknown]
  - Prostate cancer [Recovered/Resolved]
  - Vascular pseudoaneurysm [Unknown]
  - Cataract [Unknown]
  - Nocturia [Not Recovered/Not Resolved]
  - Atrial septal defect [Recovered/Resolved]

NARRATIVE: CASE EVENT DATE: 200202
